FAERS Safety Report 4539501-4 (Version None)
Quarter: 2004Q4

REPORT INFORMATION
  Report Type: 
  Country: None (occurrence: None)
  Receive Date: 20041223
  Receipt Date: 20041220
  Transmission Date: 20050328
  Serious: Yes (Other)
  Sender: FDA-Public Use
  Company Number: CAR-2004-018

PATIENT
  Age: 49 Year
  Sex: Female

DRUGS (1)
  1. ULCOGANT          (SUCRALFATE) [Suspect]
     Indication: STRESS ULCER
     Dosage: INTRAVENOUS
     Route: 042
     Dates: start: 20041129

REACTIONS (5)
  - AGITATION [None]
  - HYPERTENSION [None]
  - HYPERVENTILATION [None]
  - MEDICATION ERROR [None]
  - TACHYPNOEA [None]
